FAERS Safety Report 5073747-4 (Version None)
Quarter: 2006Q3

REPORT INFORMATION
  Report Type: 
  Country: None (occurrence: None)
  Receive Date: 20060808
  Receipt Date: 20050422
  Transmission Date: 20061208
  Serious: No
  Sender: FDA-Public Use
  Company Number: US-AMGEN-KDL128807

PATIENT
  Sex: Female

DRUGS (4)
  1. PROCRIT [Suspect]
     Indication: ANAEMIA
     Dates: start: 20050101
  2. INSULIN [Concomitant]
  3. OXYCONTIN [Concomitant]
  4. UNSPECIFIED MEDICATION [Concomitant]
     Route: 047

REACTIONS (1)
  - BLOOD PRESSURE INCREASED [None]
